FAERS Safety Report 21331935 (Version 1)
Quarter: 2022Q3

REPORT INFORMATION
  Report Type: Spontaneous
  Country: US (occurrence: None)
  Receive Date: 20220913
  Receipt Date: 20220913
  Transmission Date: 20221026
  Serious: Yes (Death)
  Sender: FDA-Public Use
  Company Number: None

PATIENT
  Age: 85 Year
  Sex: Male

DRUGS (16)
  1. DOXORUBICIN [Suspect]
     Active Substance: DOXORUBICIN
     Indication: Diffuse large B-cell lymphoma
     Dosage: OTHER FREQUENCY : D1 Q21DAYS;?
     Route: 042
     Dates: start: 20220719, end: 20220909
  2. VINCRISTINE [Suspect]
     Active Substance: VINCRISTINE
     Indication: Diffuse large B-cell lymphoma
     Dosage: OTHER FREQUENCY : D1 Q21DAYS;?
     Route: 042
     Dates: start: 20220719, end: 20220909
  3. PREDNISONE [Concomitant]
  4. ZARXIO [Concomitant]
     Active Substance: FILGRASTIM-SNDZ
  5. CYCLOPHOSPHAMIDE [Concomitant]
  6. RITUXAN [Concomitant]
  7. ALLOPURINOL [Concomitant]
     Active Substance: ALLOPURINOL
  8. ATORVASTATIN [Concomitant]
  9. CLOTRIMAZOLE ELIQUIS [Concomitant]
  10. FINASTERIDE [Concomitant]
  11. LEVOTHYROXINE [Concomitant]
  12. LISINOPRIL [Concomitant]
     Active Substance: LISINOPRIL
  13. METOPROLOL [Concomitant]
     Active Substance: METOPROLOL
  14. OXYCODONE-ACETAMINOPOHEN [Concomitant]
  15. TAMSULOSIN [Concomitant]
     Active Substance: TAMSULOSIN
  16. TERAZOSIN [Concomitant]

REACTIONS (1)
  - Death [None]

NARRATIVE: CASE EVENT DATE: 20220909
